FAERS Safety Report 6565148-4 (Version None)
Quarter: 2010Q1

REPORT INFORMATION
  Report Type: 
  Country: None (occurrence: None)
  Receive Date: 20100201
  Receipt Date: 20100122
  Transmission Date: 20100710
  Serious: Yes (Hospitalization)
  Sender: FDA-Public Use
  Company Number: B0619244A

PATIENT
  Sex: Male

DRUGS (6)
  1. AUGMENTIN '125' [Suspect]
     Indication: FEBRILE INFECTION
     Dosage: 375MG THREE TIMES PER DAY
     Route: 048
     Dates: start: 20091210, end: 20091217
  2. ASPIRIN [Suspect]
     Dosage: 100MG PER DAY
     Route: 048
     Dates: start: 20060901, end: 20091201
  3. NORVASC [Concomitant]
     Indication: HYPERTENSION
     Dosage: 5MG PER DAY
     Route: 048
     Dates: start: 20060901
  4. UNKNOWN DRUG [Concomitant]
     Indication: DEMENTIA
     Dosage: 200MG PER DAY
     Route: 048
     Dates: start: 20060901
  5. PANALDINE [Concomitant]
     Dosage: 200MG PER DAY
     Route: 048
     Dates: start: 20060901
  6. ARICEPT [Concomitant]
     Indication: DEMENTIA
     Dosage: 5MG PER DAY
     Route: 048
     Dates: start: 20060901

REACTIONS (1)
  - FAECES DISCOLOURED [None]
